FAERS Safety Report 5814028-8 (Version None)
Quarter: 2008Q3

REPORT INFORMATION
  Report Type: 
  Country: None (occurrence: None)
  Receive Date: 20080717
  Receipt Date: 20080708
  Transmission Date: 20090109
  Serious: Yes (Other)
  Sender: FDA-Public Use
  Company Number: JP-PFIZER INC-2008046259

PATIENT
  Sex: Female
  Weight: 55 kg

DRUGS (14)
  1. AROMASIN [Suspect]
     Indication: BREAST CANCER
     Route: 048
     Dates: start: 20060831, end: 20080605
  2. CRESTOR [Concomitant]
     Dosage: FREQ:2.5 MG/DAILY
     Route: 048
  3. MYSLEE [Concomitant]
     Route: 048
  4. FOSAMAX [Concomitant]
  5. ALFA D [Concomitant]
  6. LENDORMIN [Concomitant]
  7. NU LOTAN [Concomitant]
  8. PAXIL [Concomitant]
  9. NAUZELIN [Concomitant]
  10. ZYRTEC [Concomitant]
  11. PEMILASTON [Concomitant]
  12. FLUNASE /JPN/ [Concomitant]
  13. CYANOCOBALAMIN [Concomitant]
  14. CARNACULIN [Concomitant]

REACTIONS (2)
  - CEREBRAL ARTERY OCCLUSION [None]
  - MUSCULAR WEAKNESS [None]
